FAERS Safety Report 15479223 (Version 2)
Quarter: 2018Q4

REPORT INFORMATION
  Report Type: Report from Study
  Country: FR (occurrence: FR)
  Receive Date: 20181009
  Receipt Date: 20181107
  Transmission Date: 20190205
  Serious: Yes (Death, Other)
  Sender: FDA-Public Use
  Company Number: FR-JAZZ-2018-FR-014777

PATIENT

DRUGS (2)
  1. DEFITELIO [Suspect]
     Active Substance: DEFIBROTIDE SODIUM
     Dosage: 29 MG/KG, QD
     Dates: start: 201708, end: 20170808
  2. DEFITELIO [Suspect]
     Active Substance: DEFIBROTIDE SODIUM
     Indication: PRODUCT USED FOR UNKNOWN INDICATION
     Dosage: 29 MG/KG, QD
     Dates: start: 20170804, end: 201708

REACTIONS (5)
  - Venoocclusive disease [Fatal]
  - Cardiotoxicity [Fatal]
  - Nephropathy toxic [Fatal]
  - Pulmonary toxicity [Fatal]
  - Infection [Fatal]

NARRATIVE: CASE EVENT DATE: 2017
